FAERS Safety Report 20204907 (Version 1)
Quarter: 2021Q4

REPORT INFORMATION
  Report Type: Spontaneous
  Country: TR (occurrence: TR)
  Receive Date: 20211220
  Receipt Date: 20211220
  Transmission Date: 20220303
  Serious: Yes (Death, Other)
  Sender: FDA-Public Use
  Company Number: TR-AMGEN-TURSP2021199280

PATIENT

DRUGS (4)
  1. FILGRASTIM [Suspect]
     Active Substance: FILGRASTIM
     Indication: Haematopoietic stem cell mobilisation
     Dosage: 10 MICROGRAM/KILOGRAM, QD (UNTIL THE STEM CELL HARVEST)
     Route: 058
  2. FILGRASTIM [Suspect]
     Active Substance: FILGRASTIM
     Dosage: 5 MICROGRAM/KILOGRAM (FROM FIRST DAY AFTER ASCT)
     Route: 058
  3. CYCLOPHOSPHAMIDE [Concomitant]
     Active Substance: CYCLOPHOSPHAMIDE
     Indication: Plasma cell myeloma
     Dosage: 4 GRAM PER SQUARE METRE (DISSOLVED IN 1000 ML OF NORMAL SALINE, ADMINISTERED WITHIN 2-3 HOURS)
  4. MESNA [Concomitant]
     Active Substance: MESNA
     Indication: Plasma cell myeloma
     Dosage: 4 GRAM PER SQUARE METRE

REACTIONS (2)
  - Death [Fatal]
  - Engraft failure [Unknown]
